FAERS Safety Report 12426359 (Version 7)
Quarter: 2017Q2

REPORT INFORMATION
  Report Type: Spontaneous
  Country: US (occurrence: US)
  Receive Date: 20160601
  Receipt Date: 20170411
  Transmission Date: 20170830
  Serious: Yes (Other)
  Sender: FDA-Public Use
  Company Number: US-GLAXOSMITHKLINE-US2016GSK069967

PATIENT
  Age: 63 Year
  Sex: Female
  Weight: 77.55 kg

DRUGS (1)
  1. NUCALA [Suspect]
     Active Substance: MEPOLIZUMAB
     Indication: ASTHMA
     Dosage: UNK, U
     Route: 058
     Dates: start: 20160321, end: 201607

REACTIONS (3)
  - Herpes zoster [Unknown]
  - Plasma cell myeloma [Unknown]
  - Osteoarthritis [Recovered/Resolved]

NARRATIVE: CASE EVENT DATE: 20160430
